FAERS Safety Report 23329010 (Version 1)
Quarter: 2023Q4

REPORT INFORMATION
  Report Type: Spontaneous
  Country: GR (occurrence: GR)
  Receive Date: 20231222
  Receipt Date: 20231222
  Transmission Date: 20240110
  Serious: No
  Sender: FDA-Public Use
  Company Number: GR-ALKEM LABORATORIES LIMITED-GR-ALKEM-2023-08377

PATIENT
  Age: 64 Year
  Sex: Male
  Weight: 84 kg

DRUGS (2)
  1. MORPHINE SULFATE [Suspect]
     Active Substance: MORPHINE SULFATE
     Indication: Postoperative analgesia
     Dosage: 100 MCG, MEGA-DOSE (IN TOTAL VOLUME OF 3 MILLILITER (ML) WAS PLANNED, USING AN ATRAUMATIC NEEDLE OF
     Route: 037
  2. ROPIVACAINE [Concomitant]
     Active Substance: ROPIVACAINE
     Indication: Postoperative analgesia
     Dosage: 15 MILLIGRAM (IN TOTAL VOLUME OF 3 MILLILITER (ML) WAS PLANNED, USING AN ATRAUMATIC NEEDLE OF 25 G)
     Route: 037

REACTIONS (1)
  - Product administration error [Unknown]
